FAERS Safety Report 8973604 (Version 1)
Quarter: 2012Q4

REPORT INFORMATION
  Report Type: 
  Country: US (occurrence: US)
  Receive Date: 20121218
  Receipt Date: 20121218
  Transmission Date: 20130627
  Serious: Yes (Hospitalization)
  Sender: FDA-Public Use
  Company Number: US-BRISTOL-MYERS SQUIBB COMPANY-16424889

PATIENT
  Age: 18 Year
  Sex: Male

DRUGS (5)
  1. ABILIFY [Suspect]
     Indication: SCHIZOAFFECTIVE DISORDER
     Route: 048
     Dates: start: 201110, end: 20120301
  2. ABILIFY [Suspect]
     Indication: HALLUCINATION, AUDITORY
     Route: 048
     Dates: start: 201110, end: 20120301
  3. LEXAPRO [Concomitant]
     Dosage: 1df=10 units nos
     Dates: start: 201104
  4. LEXAPRO [Concomitant]
     Dates: start: 201104
  5. WELLBUTRIN [Concomitant]
     Dosage: 1df=450 units nos; started since approximately Apr-2011
     Dates: start: 201104

REACTIONS (2)
  - Orthostatic hypotension [Recovered/Resolved]
  - Hypertension [Unknown]
